FAERS Safety Report 8911232 (Version 1)
Quarter: 2012Q4

REPORT INFORMATION
  Report Type: 
  Country: US (occurrence: US)
  Receive Date: 20121116
  Receipt Date: 20121116
  Transmission Date: 20130627
  Serious: No
  Sender: FDA-Public Use
  Company Number: US-GLAXOSMITHKLINE-A0992800A

PATIENT
  Age: 60 Year
  Sex: Male
  Weight: 99 kg

DRUGS (8)
  1. VOTRIENT [Suspect]
     Dosage: 200MG Three times per day
     Route: 048
  2. ZANTAC [Concomitant]
     Route: 048
  3. JANUMET [Concomitant]
     Route: 048
  4. LEVOTHYROXIN [Concomitant]
     Route: 048
  5. GLIPIZIDE [Concomitant]
     Route: 048
  6. PREVACID [Concomitant]
     Route: 048
  7. GEMFIBROZIL [Concomitant]
     Route: 048
  8. AMLODIPINE [Concomitant]
     Route: 048

REACTIONS (1)
  - Fatigue [Unknown]
